FAERS Safety Report 5691491-7 (Version None)
Quarter: 2008Q1

REPORT INFORMATION
  Report Type: 
  Country: None (occurrence: None)
  Receive Date: 20080331
  Receipt Date: 20080212
  Transmission Date: 20080703
  Serious: No
  Sender: FDA-Public Use
  Company Number: US022026

PATIENT
  Age: 59 Year
  Sex: Male
  Weight: 72.5755 kg

DRUGS (9)
  1. FENTORA [Suspect]
     Indication: POST LAMINECTOMY SYNDROME
     Dosage: 800 UG QID BUCCAL
     Route: 002
     Dates: start: 20061106, end: 20061201
  2. ACTIQ [Concomitant]
  3. AVINZA [Concomitant]
  4. DURAGESIC-100 [Concomitant]
  5. DILAUDID [Concomitant]
  6. VALIUM [Concomitant]
  7. GABITRIL [Concomitant]
  8. PROVIGIL [Concomitant]
  9. HYDROCODONE BITARTRATE [Concomitant]

REACTIONS (7)
  - DIARRHOEA [None]
  - DRUG EFFECT DECREASED [None]
  - INAPPROPRIATE SCHEDULE OF DRUG ADMINISTRATION [None]
  - INCORRECT DOSE ADMINISTERED [None]
  - MEDICATION ERROR [None]
  - PHARMACEUTICAL PRODUCT COMPLAINT [None]
  - WITHDRAWAL SYNDROME [None]
